FAERS Safety Report 23993158 (Version 1)
Quarter: 2024Q2

REPORT INFORMATION
  Report Type: Spontaneous
  Country: US (occurrence: US)
  Receive Date: 20240620
  Receipt Date: 20240620
  Transmission Date: 20240716
  Serious: No
  Sender: FDA-Public Use
  Company Number: US-TEVA-VS-3208727

PATIENT
  Age: 73 Year
  Sex: Female

DRUGS (2)
  1. VENLAFAXINE HYDROCHLORIDE [Suspect]
     Active Substance: VENLAFAXINE HYDROCHLORIDE
     Indication: Product used for unknown indication
     Route: 065
  2. Vitafusion melatonin [Concomitant]

REACTIONS (4)
  - Tremor [Unknown]
  - Psychomotor hyperactivity [Unknown]
  - Agitation [Unknown]
  - Serum serotonin increased [Unknown]
